FAERS Safety Report 5123213-2 (Version None)
Quarter: 2006Q4

REPORT INFORMATION
  Report Type: 
  Country: None (occurrence: None)
  Receive Date: 20061005
  Receipt Date: 20060919
  Transmission Date: 20070319
  Serious: Yes (Other)
  Sender: FDA-Public Use
  Company Number: S06-IRL-04008-01

PATIENT
  Age: 50 Year
  Sex: Female

DRUGS (8)
  1. LEXAPRO [Suspect]
     Indication: DEPRESSION
     Dosage: 5 MG QD PO
     Route: 048
     Dates: start: 20060727, end: 20060912
  2. XANAX [Concomitant]
  3. ZISPRIN (MIRTAZAPINE) [Concomitant]
  4. ALVESCO [Concomitant]
  5. VENTOLIN [Concomitant]
  6. SALBUTAMOL [Concomitant]
  7. CEFACLOR [Concomitant]
  8. GYNO-PEVARYL (ECONAZOLE NITRATE) [Concomitant]

REACTIONS (4)
  - BLOOD POTASSIUM DECREASED [None]
  - CARDIAC FIBRILLATION [None]
  - CARDIAC FLUTTER [None]
  - FLUSHING [None]
